FAERS Safety Report 12531888 (Version 1)
Quarter: 2016Q3

REPORT INFORMATION
  Report Type: Report from Study
  Country: US (occurrence: US)
  Receive Date: 20160706
  Receipt Date: 20160706
  Transmission Date: 20161109
  Serious: Yes (Death)
  Sender: FDA-Public Use
  Company Number: US-ASTRAZENECA-2016SE29996

PATIENT
  Age: 963 Month
  Sex: Female
  Weight: 86.2 kg

DRUGS (5)
  1. LYNPARZA [Suspect]
     Active Substance: OLAPARIB
     Indication: OVARIAN CANCER
     Route: 048
     Dates: start: 20160302, end: 20160605
  2. LYNPARZA [Suspect]
     Active Substance: OLAPARIB
     Indication: BRCA2 GENE MUTATION
     Route: 048
     Dates: start: 20160302, end: 20160605
  3. LABETALOL [Concomitant]
     Active Substance: LABETALOL\LABETALOL HYDROCHLORIDE
  4. LOSARTEN POTASSIUM, GENERIC COZAAR [Concomitant]
  5. CENTRUM MULTIVITAMIN OTC [Concomitant]

REACTIONS (7)
  - Death [Fatal]
  - Nausea [Unknown]
  - Dyspnoea [Not Recovered/Not Resolved]
  - Blood iron decreased [Unknown]
  - Cough [Unknown]
  - Fatigue [Recovering/Resolving]
  - Activities of daily living impaired [Unknown]

NARRATIVE: CASE EVENT DATE: 201603
